FAERS Safety Report 7861347-X (Version None)
Quarter: 2011Q4

REPORT INFORMATION
  Report Type: 
  Country: None (occurrence: None)
  Receive Date: 20111027
  Receipt Date: 20111024
  Transmission Date: 20120403
  Serious: Yes (Other)
  Sender: FDA-Public Use
  Company Number: US-BAYER-2011-104039

PATIENT
  Age: 18 Year
  Sex: Female

DRUGS (2)
  1. ALEVE (CAPLET) [Suspect]
     Indication: DYSMENORRHOEA
     Dosage: COUNT SIZE 50S
  2. PREDNISONE [Concomitant]

REACTIONS (2)
  - CONVULSION [None]
  - PAIN [None]
